FAERS Safety Report 4351076-1 (Version None)
Quarter: 2004Q2

REPORT INFORMATION
  Report Type: 
  Country: None (occurrence: None)
  Receive Date: 20040427
  Receipt Date: 20040419
  Transmission Date: 20050107
  Serious: Yes (Hospitalization)
  Sender: FDA-Public Use
  Company Number: 200403556

PATIENT
  Age: 18 Month
  Sex: Male
  Weight: 10.5 kg

DRUGS (2)
  1. UNSPECIFIED CHILDREN'S IBUPROFEN PRODUCT [Suspect]
     Indication: PYREXIA
     Dosage: 300 MG, PO, DAILY
     Route: 048
  2. ACETAMINOPHEN [Concomitant]

REACTIONS (14)
  - ACIDOSIS [None]
  - DEHYDRATION [None]
  - GLOMERULAR FILTRATION RATE DECREASED [None]
  - HYPERKALAEMIA [None]
  - NEUTROPHILIA [None]
  - PERITONEAL DIALYSIS [None]
  - RENAL CORTICAL NECROSIS [None]
  - RENAL FAILURE ACUTE [None]
  - RENAL TUBULAR NECROSIS [None]
  - RESPIRATORY SYNCYTIAL VIRUS INFECTION [None]
  - SOMNOLENCE [None]
  - TACHYPNOEA [None]
  - WHEEZING [None]
  - WHITE BLOOD CELL COUNT INCREASED [None]
